FAERS Safety Report 7619156-2 (Version None)
Quarter: 2011Q3

REPORT INFORMATION
  Report Type: 
  Country: None (occurrence: None)
  Receive Date: 20110718
  Receipt Date: 20110506
  Transmission Date: 20111222
  Serious: Yes (Other)
  Sender: FDA-Public Use
  Company Number: US-ASTRAZENECA-2011SE27320

PATIENT

DRUGS (3)
  1. PRILOSEC [Suspect]
     Route: 048
  2. PROTONIX [Interacting]
     Route: 065
  3. PLAVIX [Interacting]
     Route: 065

REACTIONS (2)
  - CARDIAC DISORDER [None]
  - DRUG INTERACTION [None]
